FAERS Safety Report 7537589-X (Version None)
Quarter: 2011Q2

REPORT INFORMATION
  Report Type: 
  Country: None (occurrence: None)
  Receive Date: 20110609
  Receipt Date: 20070419
  Transmission Date: 20111010
  Serious: Yes (Death, Hospitalization, Other)
  Sender: FDA-Public Use
  Company Number: PHFR2007IE00481

PATIENT
  Sex: Male

DRUGS (1)
  1. CLOZAPINE [Suspect]
     Indication: SCHIZOPHRENIA
     Route: 048
     Dates: start: 20061016

REACTIONS (8)
  - MALAISE [None]
  - DYSPHAGIA [None]
  - PARKINSON'S DISEASE [None]
  - ASPIRATION [None]
  - BRONCHOPNEUMONIA [None]
  - LUNG INFECTION [None]
  - RESPIRATORY TRACT INFECTION [None]
  - WHITE BLOOD CELL COUNT INCREASED [None]
